FAERS Safety Report 19751754 (Version 1)
Quarter: 2021Q3

REPORT INFORMATION
  Report Type: Report from Study
  Country: None (occurrence: BE)
  Receive Date: 20210827
  Receipt Date: 20210827
  Transmission Date: 20211014
  Serious: Yes (Hospitalization)
  Sender: FDA-Public Use
  Company Number: BE-ABBVIE-21K-013-4001252-00

PATIENT
  Sex: Female
  Weight: 63 kg

DRUGS (12)
  1. DUODOPA [Suspect]
     Active Substance: CARBIDOPA\LEVODOPA
     Indication: PARKINSON^S DISEASE
     Route: 050
     Dates: start: 20171120
  2. ALENDRONATE [Concomitant]
     Active Substance: ALENDRONATE SODIUM
     Indication: PRODUCT USED FOR UNKNOWN INDICATION
  3. VITAMIN D3 [Concomitant]
     Active Substance: CHOLECALCIFEROL
     Indication: PRODUCT USED FOR UNKNOWN INDICATION
  4. PANTOMED [Concomitant]
     Indication: PRODUCT USED FOR UNKNOWN INDICATION
  5. THEALOZ DUO [Concomitant]
     Active Substance: HYALURONATE SODIUM\TREHALOSE
     Indication: PRODUCT USED FOR UNKNOWN INDICATION
  6. GUTRON [Concomitant]
     Active Substance: MIDODRINE HYDROCHLORIDE
     Indication: PRODUCT USED FOR UNKNOWN INDICATION
     Dosage: AT 8:00 ?13:00
  7. AZILECT [Concomitant]
     Active Substance: RASAGILINE MESYLATE
     Indication: PRODUCT USED FOR UNKNOWN INDICATION
     Dosage: IN THE MORNING
  8. PROLOPA [Concomitant]
     Active Substance: BENSERAZIDE\LEVODOPA
     Indication: PRODUCT USED FOR UNKNOWN INDICATION
     Dosage: 1/2 AT 8:00?10.30?13:00?15.30?18:00?20.30
  9. DUODOPA [Suspect]
     Active Substance: CARBIDOPA\LEVODOPA
     Dosage: CD 1.5 ML/H, ED 0.8 ML, DURING 16 HRS
     Route: 050
     Dates: start: 20201127, end: 20210118
  10. PROLOPA [Concomitant]
     Active Substance: BENSERAZIDE\LEVODOPA
     Dosage: 1 AT 22:00H AND 1 AT 5:00H
  11. ETHYROXEN [Concomitant]
     Indication: PRODUCT USED FOR UNKNOWN INDICATION
  12. DUODOPA [Suspect]
     Active Substance: CARBIDOPA\LEVODOPA
     Dosage: CD 1.6 ML/H, ED 0.8 ML, DURING 16 HRS
     Route: 050
     Dates: start: 20210118

REACTIONS (5)
  - Device difficult to use [Unknown]
  - Mobility decreased [Recovering/Resolving]
  - Pain [Unknown]
  - Spinal operation [Unknown]
  - General physical health deterioration [Recovering/Resolving]
